FAERS Safety Report 22274345 (Version 2)
Quarter: 2023Q2

REPORT INFORMATION
  Report Type: Spontaneous
  Country: US (occurrence: US)
  Receive Date: 20230502
  Receipt Date: 20230615
  Transmission Date: 20230722
  Serious: No
  Sender: FDA-Public Use
  Company Number: US-SCIEGENP-2023SCSPO00198

PATIENT
  Age: 61 Year
  Sex: Female
  Weight: 140 kg

DRUGS (5)
  1. BUPROPION HYDROCHLORIDE [Suspect]
     Active Substance: BUPROPION HYDROCHLORIDE
     Indication: Depression
     Route: 065
     Dates: start: 2022, end: 202301
  2. BUPROPION HYDROCHLORIDE [Suspect]
     Active Substance: BUPROPION HYDROCHLORIDE
     Dosage: START DATE OF MEDICATION 2017 OR 2018 STOP DATE2018 OR 2019
     Route: 065
  3. BUPROPION HYDROCHLORIDE [Suspect]
     Active Substance: BUPROPION HYDROCHLORIDE
     Dosage: TOOK AROUND 06 MONTHS
     Route: 065
     Dates: start: 2020, end: 2020
  4. BUPROPION HYDROCHLORIDE [Suspect]
     Active Substance: BUPROPION HYDROCHLORIDE
     Route: 065
     Dates: start: 202201, end: 202201
  5. BUPROPION HYDROCHLORIDE [Suspect]
     Active Substance: BUPROPION HYDROCHLORIDE
     Dosage: DIFFERENT VERSIONS OF 100 MG
     Route: 065

REACTIONS (4)
  - Upper-airway cough syndrome [Recovered/Resolved]
  - Sinus disorder [Recovered/Resolved]
  - Throat clearing [Recovered/Resolved]
  - Insomnia [Recovered/Resolved]

NARRATIVE: CASE EVENT DATE: 20170101
